FAERS Safety Report 18334037 (Version 1)
Quarter: 2020Q4

REPORT INFORMATION
  Report Type: Spontaneous
  Country: CN (occurrence: CN)
  Receive Date: 20201001
  Receipt Date: 20201001
  Transmission Date: 20210113
  Serious: Yes (Other)
  Sender: FDA-Public Use
  Company Number: CN-PFIZER INC-2020377589

PATIENT
  Age: 66 Year
  Sex: Male
  Weight: 60 kg

DRUGS (2)
  1. FLUCONAZOLE. [Suspect]
     Active Substance: FLUCONAZOLE
     Indication: MENINGITIS CRYPTOCOCCAL
  2. FLUCONAZOLE. [Suspect]
     Active Substance: FLUCONAZOLE
     Indication: ANTI-INFECTIVE THERAPY
     Dosage: 0.800 G, 1X/DAY
     Route: 041
     Dates: start: 20200917, end: 20200918

REACTIONS (6)
  - Hypoacusis [Recovering/Resolving]
  - Logorrhoea [Recovering/Resolving]
  - Mental disorder [Recovering/Resolving]
  - Psychomotor hyperactivity [Recovering/Resolving]
  - Headache [Recovered/Resolved]
  - Insomnia [Recovering/Resolving]

NARRATIVE: CASE EVENT DATE: 20200917
